FAERS Safety Report 18241200 (Version 1)
Quarter: 2020Q3

REPORT INFORMATION
  Report Type: Spontaneous
  Country: US (occurrence: US)
  Receive Date: 20200904
  Receipt Date: 20200904
  Transmission Date: 20201103
  Serious: Yes (Life-Threatening)
  Sender: FDA-Public Use
  Company Number: None

PATIENT
  Age: 65 Year
  Sex: Male
  Weight: 136.9 kg

DRUGS (1)
  1. DABIGATRAN (DABIGATRAN ETEXILATE 150MG CAP, ORAL) [Suspect]
     Active Substance: DABIGATRAN
     Indication: ATRIAL FIBRILLATION
     Route: 048
     Dates: start: 20120308, end: 20120414

REACTIONS (4)
  - Acute myocardial infarction [None]
  - Tachycardia [None]
  - Palpitations [None]
  - Respiratory depression [None]

NARRATIVE: CASE EVENT DATE: 20120414
